FAERS Safety Report 19351157 (Version 1)
Quarter: 2021Q2

REPORT INFORMATION
  Report Type: Spontaneous
  Country: SE (occurrence: SE)
  Receive Date: 20210531
  Receipt Date: 20210531
  Transmission Date: 20210717
  Serious: Yes (Death, Other)
  Sender: FDA-Public Use
  Company Number: SE-ACCORD-226496

PATIENT
  Age: 78 Year
  Sex: Male

DRUGS (9)
  1. ACETYLSALICYLIC ACID [Concomitant]
     Active Substance: ASPIRIN
     Dates: start: 20171107, end: 20200619
  2. SIMVASTATIN. [Concomitant]
     Active Substance: SIMVASTATIN
     Dates: start: 20151030, end: 20200619
  3. METFORMIN [Concomitant]
     Active Substance: METFORMIN HYDROCHLORIDE
     Dates: start: 20190225, end: 20200619
  4. AMLODIPINE [Concomitant]
     Active Substance: AMLODIPINE BESYLATE
     Dates: start: 20151030, end: 20200619
  5. NYSTIMEX [Concomitant]
     Active Substance: NYSTATIN
     Dates: start: 20200617, end: 20200619
  6. BETOLVIDON [Concomitant]
     Active Substance: CYANOCOBALAMIN
     Dates: start: 20171107, end: 20200619
  7. PREDNISOLONE. [Concomitant]
     Active Substance: PREDNISOLONE
     Dates: start: 20170127, end: 20200619
  8. METHOTREXATE. [Suspect]
     Active Substance: METHOTREXATE
     Indication: RHEUMATOID ARTHRITIS
     Dosage: 2,5MG 7ST
     Route: 048
     Dates: start: 1996, end: 20200615
  9. ENALAPRIL [Concomitant]
     Active Substance: ENALAPRIL
     Dates: start: 20151030, end: 20200619

REACTIONS (2)
  - Product communication issue [Unknown]
  - Myelosuppression [Fatal]

NARRATIVE: CASE EVENT DATE: 202006
